FAERS Safety Report 16451815 (Version 3)
Quarter: 2019Q2

REPORT INFORMATION
  Report Type: Report from Study
  Country: CO (occurrence: CO)
  Receive Date: 20190619
  Receipt Date: 20190626
  Transmission Date: 20190711
  Serious: Yes (Death, Hospitalization)
  Sender: FDA-Public Use
  Company Number: PHHY2019CO137390

PATIENT
  Age: 13 Year
  Sex: Female
  Weight: 18 kg

DRUGS (2)
  1. REVOLADE [Suspect]
     Active Substance: ELTROMBOPAG
     Indication: THROMBOCYTOPENIA
     Dosage: 25 MG, QD
     Route: 048
  2. METHOCARBAMOL. [Suspect]
     Active Substance: METHOCARBAMOL
     Indication: PRODUCT USED FOR UNKNOWN INDICATION
     Dosage: UNK
     Route: 065

REACTIONS (7)
  - Thrombocytopenic purpura [Fatal]
  - Aphasia [Unknown]
  - Seizure [Unknown]
  - Somnolence [Unknown]
  - Malabsorption [Unknown]
  - Neck pain [Unknown]
  - Ischaemia [Unknown]

NARRATIVE: CASE EVENT DATE: 20190615
